FAERS Safety Report 13728824 (Version 1)
Quarter: 2017Q3

REPORT INFORMATION
  Report Type: Spontaneous
  Country: US (occurrence: US)
  Receive Date: 20170707
  Receipt Date: 20170707
  Transmission Date: 20171127
  Serious: Yes (Hospitalization, Other)
  Sender: FDA-Public Use
  Company Number: US-SUN PHARMACEUTICAL INDUSTRIES LTD-2017US-144644

PATIENT
  Sex: Male

DRUGS (1)
  1. ABSORICA [Suspect]
     Active Substance: ISOTRETINOIN
     Indication: PRODUCT USED FOR UNKNOWN INDICATION
     Dosage: 40 MG, BID
     Route: 065
     Dates: end: 2017

REACTIONS (10)
  - Eye irritation [Unknown]
  - Hospitalisation [Unknown]
  - Blindness [Not Recovered/Not Resolved]
  - Lip dry [Unknown]
  - Dry eye [Unknown]
  - Vision blurred [Unknown]
  - Drug ineffective [Unknown]
  - Chapped lips [Unknown]
  - Alopecia [Unknown]
  - Dry skin [Unknown]
